FAERS Safety Report 5404260-X (Version None)
Quarter: 2007Q3

REPORT INFORMATION
  Report Type: 
  Country: None (occurrence: None)
  Receive Date: 20070802
  Receipt Date: 20070723
  Transmission Date: 20080115
  Serious: Yes (Other)
  Sender: FDA-Public Use
  Company Number: US-GILEAD-2007-0012746

PATIENT
  Age: 62 Year
  Sex: Male

DRUGS (11)
  1. LETAIRIS [Suspect]
     Indication: PULMONARY HYPERTENSION
     Route: 048
     Dates: start: 20070721, end: 20070722
  2. SILDENAFIL CITRATE [Concomitant]
  3. COUMADIN [Concomitant]
  4. PRAVACHOL [Concomitant]
  5. LASIX [Concomitant]
  6. SPIRIVA [Concomitant]
  7. FORMOTEROL FUMARATE [Concomitant]
  8. ASMANEX TWISTHALER [Concomitant]
  9. AMBIEN CR [Concomitant]
  10. PRILOSEC [Concomitant]
  11. ALBUTEROL [Concomitant]

REACTIONS (5)
  - CYANOSIS [None]
  - DYSPNOEA [None]
  - HYPERHIDROSIS [None]
  - STOMACH DISCOMFORT [None]
  - TREMOR [None]
